FAERS Safety Report 7066392-2 (Version None)
Quarter: 2010Q4

REPORT INFORMATION
  Report Type: 
  Country: None (occurrence: None)
  Receive Date: 20101027
  Receipt Date: 20091125
  Transmission Date: 20110411
  Serious: No
  Sender: FDA-Public Use
  Company Number: US-WYE-H12423509

PATIENT
  Sex: Female
  Weight: 61.29 kg

DRUGS (1)
  1. PREMPRO [Suspect]
     Indication: HORMONE REPLACEMENT THERAPY
     Dosage: DOESN'T REMEMBER THE DOSE
     Route: 048
     Dates: start: 20070101

REACTIONS (2)
  - DYSGEUSIA [None]
  - NAUSEA [None]
